FAERS Safety Report 7236278-9 (Version None)
Quarter: 2011Q1

REPORT INFORMATION
  Report Type: 
  Country: None (occurrence: None)
  Receive Date: 20110120
  Receipt Date: 20110114
  Transmission Date: 20110831
  Serious: Yes (Other)
  Sender: FDA-Public Use
  Company Number: US-MERCK-1012USA01846

PATIENT
  Age: 49 Year
  Sex: Male

DRUGS (12)
  1. PLAVIX [Concomitant]
     Route: 065
  2. PEPCID [Concomitant]
     Route: 048
  3. TUMS [Concomitant]
     Route: 065
  4. FOLIC ACID [Concomitant]
     Route: 065
  5. THIAMINE [Concomitant]
     Route: 065
  6. ASPIRIN [Concomitant]
     Route: 065
  7. METHADONE HYDROCHLORIDE [Concomitant]
     Route: 065
  8. VYTORIN [Suspect]
     Indication: BLOOD CHOLESTEROL INCREASED
     Route: 048
     Dates: start: 20081201, end: 20091201
  9. CALCITRIOL [Concomitant]
     Route: 065
  10. PYRIDOXINE [Concomitant]
     Route: 065
  11. NEPHROCAPS [Concomitant]
     Route: 065
  12. VYTORIN [Suspect]
     Route: 048
     Dates: start: 20100101, end: 20101201

REACTIONS (3)
  - SOMNOLENCE [None]
  - DYSPNOEA [None]
  - RENAL FAILURE [None]
